FAERS Safety Report 7459342-8 (Version None)
Quarter: 2011Q2

REPORT INFORMATION
  Report Type: 
  Country: None (occurrence: None)
  Receive Date: 20110505
  Receipt Date: 20110422
  Transmission Date: 20111010
  Serious: No
  Sender: FDA-Public Use
  Company Number: US-PFIZER INC-2011087935

PATIENT
  Age: 91 Year
  Sex: Female

DRUGS (2)
  1. TESSALON [Suspect]
     Indication: COUGH
  2. TESSALON [Suspect]
     Indication: RHINORRHOEA
     Dosage: UNK
     Dates: start: 20110401

REACTIONS (1)
  - DRUG INEFFECTIVE [None]
